FAERS Safety Report 7773137 (Version 4)
Quarter: 2013Q3

REPORT INFORMATION
  Report Type: Spontaneous
  Country: US (occurrence: US)
  Receive Date: 20110125
  Receipt Date: 20130705
  Transmission Date: 20140515
  Serious: Yes (Other)
  Sender: FDA-Public Use
  Company Number: US-JNJFOC-20110104467

PATIENT
  Age: 53 Year
  Sex: Male
  Weight: 86.18 kg

DRUGS (18)
  1. REMICADE [Suspect]
     Indication: RHEUMATOID ARTHRITIS
     Route: 042
     Dates: end: 2008
  2. REMICADE [Suspect]
     Indication: RHEUMATOID ARTHRITIS
     Route: 042
     Dates: start: 20100710, end: 20120312
  3. REMICADE [Suspect]
     Indication: RHEUMATOID ARTHRITIS
     Route: 042
     Dates: start: 2009
  4. METHOTREXATE [Concomitant]
     Indication: RHEUMATOID ARTHRITIS
     Dosage: 6 TABLETS ONCE WEEKLY
  5. PLAQUENIL [Concomitant]
     Indication: RHEUMATOID ARTHRITIS
     Dosage: 2 TABLETS ONCE DAILY
     Route: 048
  6. PREDNISONE [Concomitant]
     Indication: RHEUMATOID ARTHRITIS
     Route: 048
  7. FOLIC ACID [Concomitant]
     Indication: NUTRITIONAL SUPPLEMENTATION
     Route: 048
  8. OXYCODONE [Concomitant]
     Indication: PAIN
     Route: 048
  9. TYLENOL NUMBER 3 [Concomitant]
     Indication: PAIN
     Route: 048
  10. TRAMADOL [Concomitant]
     Indication: PAIN
     Route: 048
  11. PROSCAR [Concomitant]
     Indication: ALOPECIA
     Route: 048
  12. QUININE [Concomitant]
     Indication: MUSCLE SPASMS
     Route: 048
  13. LISINOPRIL [Concomitant]
     Indication: HYPERTENSION
     Route: 048
  14. CELEBREX [Concomitant]
     Indication: INFLAMMATION
     Route: 048
  15. CELEBREX [Concomitant]
     Indication: INFLAMMATION
     Route: 048
     Dates: start: 201012
  16. CELEBREX [Concomitant]
     Indication: PAIN
     Route: 048
  17. CELEBREX [Concomitant]
     Indication: PAIN
     Route: 048
     Dates: start: 201012
  18. SOLU MEDROL [Concomitant]
     Indication: PREMEDICATION
     Route: 042
     Dates: start: 20100710, end: 20120312

REACTIONS (4)
  - Migraine [Recovered/Resolved]
  - Infusion related reaction [Recovered/Resolved]
  - Rheumatoid arthritis [Not Recovered/Not Resolved]
  - Dizziness [Not Recovered/Not Resolved]
